FAERS Safety Report 22120002 (Version 1)
Quarter: 2023Q1

REPORT INFORMATION
  Report Type: Spontaneous
  Country: US (occurrence: US)
  Receive Date: 20230321
  Receipt Date: 20230321
  Transmission Date: 20230417
  Serious: No
  Sender: FDA-Public Use
  Company Number: US-PERRIGO-23US003524

PATIENT
  Age: 64 Year
  Sex: Female
  Weight: 60.317 kg

DRUGS (1)
  1. NASONEX [Suspect]
     Active Substance: MOMETASONE FUROATE
     Indication: Sinus congestion
     Dosage: 50 MCG IN EACH NOSTRIL, BID
     Route: 045
     Dates: start: 20230310

REACTIONS (2)
  - Underdose [Unknown]
  - Inappropriate schedule of product administration [Unknown]

NARRATIVE: CASE EVENT DATE: 20230310
